FAERS Safety Report 9383110 (Version 3)
Quarter: 2013Q3

REPORT INFORMATION
  Report Type: Spontaneous
  Country: JP (occurrence: JP)
  Receive Date: 20130704
  Receipt Date: 20130725
  Transmission Date: 20140515
  Serious: Yes (Hospitalization, Other)
  Sender: FDA-Public Use
  Company Number: JP-JNJFOC-20121205332

PATIENT
  Age: 59 Year
  Sex: Male

DRUGS (10)
  1. REMICADE [Suspect]
     Indication: MYELODYSPLASTIC SYNDROME
     Route: 042
  2. REMICADE [Suspect]
     Indication: MYELODYSPLASTIC SYNDROME
     Route: 042
     Dates: start: 201110
  3. REMICADE [Suspect]
     Indication: BEHCET^S SYNDROME
     Route: 042
     Dates: start: 201110
  4. REMICADE [Suspect]
     Indication: BEHCET^S SYNDROME
     Route: 042
  5. PREDNISOLONE [Concomitant]
     Indication: MYELODYSPLASTIC SYNDROME
     Route: 065
     Dates: start: 201107
  6. PREDNISOLONE [Concomitant]
     Indication: BEHCET^S SYNDROME
     Route: 065
     Dates: start: 201107
  7. MANY OTHER UNSPECIFIED MEDICATIONS [Concomitant]
     Route: 065
     Dates: start: 201107
  8. MESALAZINE [Concomitant]
     Indication: BEHCET^S SYNDROME
     Route: 065
  9. COLCHICINE [Concomitant]
     Indication: BEHCET^S SYNDROME
     Route: 065
  10. CICLOSPORIN [Concomitant]
     Indication: BEHCET^S SYNDROME
     Route: 065

REACTIONS (10)
  - Pseudomonal sepsis [Recovered/Resolved]
  - Emphysema [Recovered/Resolved]
  - Viral infection [Recovered/Resolved]
  - Oesophageal candidiasis [Recovered/Resolved]
  - Cytomegalovirus test positive [Recovered/Resolved]
  - Pancytopenia [Recovered/Resolved]
  - Myelodysplastic syndrome [Unknown]
  - Pneumonia pseudomonal [Recovered/Resolved]
  - Enteritis [Recovered/Resolved]
  - Off label use [Unknown]
